FAERS Safety Report 24260503 (Version 3)
Quarter: 2024Q4

REPORT INFORMATION
  Report Type: Spontaneous
  Country: GB (occurrence: GB)
  Receive Date: 20240828
  Receipt Date: 20241028
  Transmission Date: 20250115
  Serious: No
  Sender: VERTEX
  Company Number: US-VERTEX PHARMACEUTICALS-2024-013617

PATIENT
  Age: 29 Year
  Sex: Female

DRUGS (1)
  1. ELEXACAFTOR\IVACAFTOR\TEZACAFTOR [Suspect]
     Active Substance: ELEXACAFTOR\IVACAFTOR\TEZACAFTOR
     Indication: Cystic fibrosis
     Dosage: UNKNOWN
     Route: 048

REACTIONS (10)
  - Brain fog [Unknown]
  - Aphasia [Unknown]
  - Mental disorder [Unknown]
  - Thinking abnormal [Unknown]
  - Negative thoughts [Unknown]
  - Paranoia [Unknown]
  - Anxiety [Unknown]
  - Cognitive disorder [Unknown]
  - Memory impairment [Unknown]
  - Weight increased [Recovered/Resolved]
